FAERS Safety Report 9593302 (Version 1)
Quarter: 2013Q4

REPORT INFORMATION
  Report Type: Report from Study
  Country: US (occurrence: US)
  Receive Date: 20131004
  Receipt Date: 20131004
  Transmission Date: 20140711
  Serious: No
  Sender: FDA-Public Use
  Company Number: US-ALEXION-A201301515

PATIENT
  Age: 82 Year
  Sex: Female
  Weight: 5 kg

DRUGS (2)
  1. SOLIRIS [Suspect]
     Indication: PAROXYSMAL NOCTURNAL HAEMOGLOBINURIA
     Dosage: UNK
     Route: 042
     Dates: start: 20120604
  2. COUMADIN [Suspect]
     Dosage: UNK
     Dates: end: 20130613

REACTIONS (1)
  - Vaginal haemorrhage [Recovered/Resolved]
